FAERS Safety Report 10102383 (Version 1)
Quarter: 2014Q2

REPORT INFORMATION
  Report Type: Spontaneous
  Country: JP (occurrence: None)
  Receive Date: 20140422
  Receipt Date: 20140422
  Transmission Date: 20141212
  Serious: Yes (Hospitalization)
  Sender: FDA-Public Use
  Company Number: 2014-001034

PATIENT
  Age: 80 Year
  Sex: Male

DRUGS (2)
  1. ATONEL (RISEDRONATE SODIUM) TABLET, 75MG [Suspect]
     Indication: SPINAL FRACTURE
     Route: 048
     Dates: start: 20140320, end: 20140320
  2. ATONEL (RISEDRONATE SODIUM) TABLET, 75MG [Suspect]
     Indication: PROPHYLAXIS
     Route: 048
     Dates: start: 20140320, end: 20140320

REACTIONS (1)
  - Gastrointestinal disorder [None]
